FAERS Safety Report 8923845 (Version 1)
Quarter: 2012Q4

REPORT INFORMATION
  Report Type: 
  Country: TH (occurrence: TH)
  Receive Date: 20121126
  Receipt Date: 20121126
  Transmission Date: 20130627
  Serious: Yes (Other)
  Sender: FDA-Public Use
  Company Number: TH-TEVA-370431ISR

PATIENT
  Age: 56 Year
  Sex: Female

DRUGS (1)
  1. CICLOSPORIN [Suspect]
     Route: 065

REACTIONS (1)
  - Renal tubular disorder [Recovered/Resolved]
